FAERS Safety Report 25531032 (Version 1)
Quarter: 2025Q3

REPORT INFORMATION
  Report Type: Spontaneous
  Country: EU (occurrence: EU)
  Receive Date: 20250708
  Receipt Date: 20250708
  Transmission Date: 20251020
  Serious: Yes (Hospitalization)
  Sender: TEVA
  Company Number: None

PATIENT
  Age: 84 Year
  Sex: Female

DRUGS (1)
  1. ZOLEDRONIC ACID [Suspect]
     Active Substance: ZOLEDRONIC ACID
     Indication: Plasma cell myeloma
     Dosage: ZOLEDRONIC ACID (1251A)
     Route: 042
     Dates: start: 20221025, end: 20240910

REACTIONS (2)
  - Osteonecrosis of jaw [Recovering/Resolving]
  - Abscess jaw [Recovered/Resolved]

NARRATIVE: CASE EVENT DATE: 20240910
